FAERS Safety Report 5246250-6 (Version None)
Quarter: 2007Q1

REPORT INFORMATION
  Report Type: 
  Country: None (occurrence: None)
  Receive Date: 20070221
  Receipt Date: 20070206
  Transmission Date: 20070707
  Serious: Yes (Other)
  Sender: FDA-Public Use
  Company Number: S06-FRA-05365-01

PATIENT
  Age: 47 Year
  Sex: Male
  Weight: 68 kg

DRUGS (5)
  1. SEROPLEX (ESCITALOPRAM) [Suspect]
     Indication: DEPRESSION
     Dosage: 10 MG QD PO
     Route: 048
     Dates: start: 20060915
  2. SEROPLEX (ESCITALOPRAM) [Suspect]
     Indication: DEPRESSION
     Dosage: 15 MG QD PO
     Route: 048
     Dates: end: 20061115
  3. ALCOHOL [Suspect]
     Dates: start: 20061104, end: 20061104
  4. LAMICTAL [Concomitant]
  5. KEPPRA [Concomitant]

REACTIONS (2)
  - CONVULSION [None]
  - EPILEPSY [None]
